APPROVED DRUG PRODUCT: ALUMINUM HYDROXIDE AND MAGNESIUM TRISILICATE
Active Ingredient: ALUMINUM HYDROXIDE; MAGNESIUM TRISILICATE
Strength: 80MG;20MG
Dosage Form/Route: TABLET, CHEWABLE;ORAL
Application: A089449 | Product #001
Applicant: PENNEX PRODUCTS CO INC
Approved: Nov 27, 1987 | RLD: No | RS: No | Type: DISCN